FAERS Safety Report 13190047 (Version 2)
Quarter: 2017Q1

REPORT INFORMATION
  Report Type: Spontaneous
  Country: IN (occurrence: IN)
  Receive Date: 20170206
  Receipt Date: 20170216
  Transmission Date: 20170428
  Serious: Yes (Other)
  Sender: FDA-Public Use
  Company Number: IN-PFIZER INC-2017044588

PATIENT
  Age: 2 Year
  Sex: Male

DRUGS (2)
  1. CYTARABINE. [Suspect]
     Active Substance: CYTARABINE
     Indication: LANGERHANS^ CELL HISTIOCYTOSIS
     Dosage: 1 G/M2, CYCLIC (6 CYCLES, ON DAYS 1, 2, AND 3)
  2. CLADRIBINE. [Suspect]
     Active Substance: CLADRIBINE
     Indication: LANGERHANS^ CELL HISTIOCYTOSIS
     Dosage: 5 MG/M2, CYCLIC (ON DAYS 2 TO 6 OF EACH CYCLE, 6 CYCLES)

REACTIONS (1)
  - Febrile neutropenia [Unknown]
